FAERS Safety Report 4816236-1 (Version None)
Quarter: 2005Q4

REPORT INFORMATION
  Report Type: 
  Country: None (occurrence: None)
  Receive Date: 20051028
  Receipt Date: 20051019
  Transmission Date: 20060501
  Serious: Yes (Hospitalization, Other)
  Sender: FDA-Public Use
  Company Number: 2005-10-0988

PATIENT
  Age: 56 Year
  Sex: Female
  Weight: 68 kg

DRUGS (6)
  1. PEG-INTRON [Suspect]
     Indication: HEPATITIS C
     Dosage: QW SUBCUTANEOUS
     Route: 058
     Dates: start: 20050113, end: 20050519
  2. REBETOL [Suspect]
     Indication: HEPATITIS C
     Dosage: 800  MG ORAL; ORAL; 800 MG ORAL
     Route: 048
     Dates: start: 20040707, end: 20040707
  3. REBETOL [Suspect]
     Indication: HEPATITIS C
     Dosage: 800  MG ORAL; ORAL; 800 MG ORAL
     Route: 048
     Dates: start: 20040707, end: 20050519
  4. REBETOL [Suspect]
     Indication: HEPATITIS C
     Dosage: 800  MG ORAL; ORAL; 800 MG ORAL
     Route: 048
     Dates: start: 20050113, end: 20050519
  5. INTERFERON [Suspect]
     Indication: HEPATITIS C
     Dates: start: 20040707, end: 20040707
  6. URSO [Concomitant]
     Dosage: 600MG

REACTIONS (4)
  - DIZZINESS [None]
  - HEPATIC STEATOSIS [None]
  - MALAISE [None]
  - RETINAL VEIN OCCLUSION [None]
